FAERS Safety Report 26130110 (Version 1)
Quarter: 2025Q4

REPORT INFORMATION
  Report Type: Spontaneous
  Country: US (occurrence: US)
  Receive Date: 20251208
  Receipt Date: 20251208
  Transmission Date: 20260117
  Serious: Yes (Life-Threatening, Hospitalization)
  Sender: AMGEN
  Company Number: US-AMGEN-USASP2025238497

PATIENT
  Age: 70 Year
  Sex: Male

DRUGS (3)
  1. PREDNISONE [Suspect]
     Active Substance: PREDNISONE
     Indication: Neuropathic muscular atrophy
     Dosage: 30 MILLIGRAM, QD
     Route: 065
  2. DOXYCYCLINE [Concomitant]
     Active Substance: DOXYCYCLINE
     Indication: Staphylococcal skin infection
  3. MUPIROCIN [Concomitant]
     Active Substance: MUPIROCIN
     Indication: Staphylococcal skin infection

REACTIONS (2)
  - Acute respiratory failure [Unknown]
  - Off label use [Unknown]
